FAERS Safety Report 13186894 (Version 1)
Quarter: 2017Q1

REPORT INFORMATION
  Report Type: Spontaneous
  Country: US (occurrence: US)
  Receive Date: 20170206
  Receipt Date: 20170206
  Transmission Date: 20170428
  Serious: Yes (Other)
  Sender: FDA-Public Use
  Company Number: US-ROCHE-1888850

PATIENT
  Sex: Male

DRUGS (2)
  1. 5-FLUOROURACIL [Concomitant]
     Active Substance: FLUOROURACIL
  2. AVASTIN [Suspect]
     Active Substance: BEVACIZUMAB
     Indication: COLORECTAL CANCER
     Route: 065

REACTIONS (2)
  - Metastases to bone [Unknown]
  - Glossitis [Unknown]
